FAERS Safety Report 5631180-8 (Version None)
Quarter: 2008Q1

REPORT INFORMATION
  Report Type: 
  Country: None (occurrence: None)
  Receive Date: 20080131
  Receipt Date: 20071029
  Transmission Date: 20080703
  Serious: No
  Sender: FDA-Public Use
  Company Number: 163-21880-07101705

PATIENT
  Age: 65 Year
  Sex: Female

DRUGS (1)
  1. REVLIMID [Suspect]
     Indication: MULTIPLE MYELOMA
     Dosage: 10 MG, DAILY X 21 DAYS, OFF 7 DAYS, ORAL
     Route: 048
     Dates: start: 20070412

REACTIONS (4)
  - ARTHRALGIA [None]
  - FATIGUE [None]
  - MALAISE [None]
  - PAIN [None]
